FAERS Safety Report 5238910-8 (Version None)
Quarter: 2007Q1

REPORT INFORMATION
  Report Type: 
  Country: None (occurrence: None)
  Receive Date: 20070209
  Receipt Date: 20070131
  Transmission Date: 20070707
  Serious: Yes (Other)
  Sender: FDA-Public Use
  Company Number: 2007SP000352

PATIENT
  Age: 36 Year
  Sex: Female

DRUGS (3)
  1. LUNESTA [Suspect]
     Dosage: ORAL
     Route: 048
  2. TRANXENE [Suspect]
  3. MOTRIN [Suspect]

REACTIONS (1)
  - SUICIDE ATTEMPT [None]
